FAERS Safety Report 19377267 (Version 1)
Quarter: 2021Q2

REPORT INFORMATION
  Report Type: Report from Study
  Country: US (occurrence: US)
  Receive Date: 20210604
  Receipt Date: 20210604
  Transmission Date: 20210717
  Serious: Yes (Hospitalization)
  Sender: FDA-Public Use
  Company Number: US-TOPROL-2021000109

PATIENT
  Sex: Male
  Weight: 122 kg

DRUGS (28)
  1. METOPROLOL SUCCINATE ER [Suspect]
     Active Substance: METOPROLOL SUCCINATE
     Route: 065
  2. VITAMIN C [Suspect]
     Active Substance: ASCORBIC ACID
     Route: 065
  3. ASPIRIN. [Suspect]
     Active Substance: ASPIRIN
     Route: 065
  4. MELATONIN [Suspect]
     Active Substance: MELATONIN
     Route: 065
  5. NALOXEGOL [Suspect]
     Active Substance: NALOXEGOL
     Route: 065
  6. ROPINIROLE. [Suspect]
     Active Substance: ROPINIROLE
     Route: 065
  7. SIMVASTATIN. [Suspect]
     Active Substance: SIMVASTATIN
     Route: 065
  8. TOPIRAMATE. [Suspect]
     Active Substance: TOPIRAMATE
     Route: 065
  9. LEVOTHYROXINE. [Suspect]
     Active Substance: LEVOTHYROXINE
     Route: 065
  10. LIDOCAINE. [Suspect]
     Active Substance: LIDOCAINE
     Dosage: 1?3 PATCHES DAILY
     Route: 065
  11. COSENTYX [Suspect]
     Active Substance: SECUKINUMAB
     Dosage: Q4WKS EVERY 4 WEEKS
     Route: 065
     Dates: start: 20160602, end: 201610
  12. BACLOFEN. [Suspect]
     Active Substance: BACLOFEN
     Route: 065
  13. LANSOPRAZOLE. [Suspect]
     Active Substance: LANSOPRAZOLE
     Route: 065
  14. MORPHINE [Suspect]
     Active Substance: MORPHINE
     Dosage: Q8H
     Route: 065
  15. TESTOSTERONE. [Suspect]
     Active Substance: TESTOSTERONE
     Route: 065
  16. COSENTYX [Suspect]
     Active Substance: SECUKINUMAB
     Dosage: Q4WKS EVERY 4 WEEKS
     Route: 065
     Dates: start: 20190731, end: 20210310
  17. TRIMIX (ALPROSTADIL\PAPAVERINE\PHENTOLAMINE) [Suspect]
     Active Substance: ALPROSTADIL\PAPAVERINE\PHENTOLAMINE
     Route: 065
  18. TAMSULOSIN [Suspect]
     Active Substance: TAMSULOSIN
     Route: 065
  19. ALBUTEROL. [Suspect]
     Active Substance: ALBUTEROL
     Dosage: 2 PUFFS Q4H PRN
     Route: 065
  20. DULOXETINE. [Suspect]
     Active Substance: DULOXETINE
     Route: 065
  21. LIOTHYRONINE [Suspect]
     Active Substance: LIOTHYRONINE
     Route: 065
  22. AMITRIPTYLINE [Suspect]
     Active Substance: AMITRIPTYLINE
     Route: 065
  23. GABAPENTIN. [Suspect]
     Active Substance: GABAPENTIN
     Route: 065
  24. OXYCODONE [Suspect]
     Active Substance: OXYCODONE
     Route: 065
  25. DHEA [Suspect]
     Active Substance: PRASTERONE
     Route: 065
  26. NAPROXEN. [Suspect]
     Active Substance: NAPROXEN
     Route: 065
  27. SULFACETAMIDE SODIUM. [Suspect]
     Active Substance: SULFACETAMIDE SODIUM
     Dosage: 1 DROP PER EYE
     Route: 065
  28. HOME OXYGEN [Suspect]
     Active Substance: OXYGEN
     Route: 065

REACTIONS (2)
  - Cellulitis [Recovered/Resolved]
  - Bursitis [Recovered/Resolved]

NARRATIVE: CASE EVENT DATE: 20200120
